FAERS Safety Report 8984545 (Version 1)
Quarter: 2012Q4

REPORT INFORMATION
  Report Type: Report from Study
  Country: CA (occurrence: CA)
  Receive Date: 20121226
  Receipt Date: 20121226
  Transmission Date: 20130627
  Serious: Yes (Hospitalization, Other)
  Sender: FDA-Public Use
  Company Number: CA-JNJFOC-20121208170

PATIENT
  Age: 63 Year
  Sex: Female
  Weight: 78.02 kg

DRUGS (1)
  1. REMICADE [Suspect]
     Indication: CROHN^S DISEASE
     Route: 042
     Dates: start: 20090910

REACTIONS (5)
  - Accident at work [Unknown]
  - Rotator cuff syndrome [Unknown]
  - Road traffic accident [Unknown]
  - Ligament sprain [Unknown]
  - Wound [Unknown]
